FAERS Safety Report 13749370 (Version 1)
Quarter: 2017Q3

REPORT INFORMATION
  Report Type: Spontaneous
  Country: US (occurrence: US)
  Receive Date: 20170713
  Receipt Date: 20170713
  Transmission Date: 20171127
  Serious: Yes (Other)
  Sender: FDA-Public Use
  Company Number: US-MYLANLABS-2017M1042043

PATIENT

DRUGS (7)
  1. AZATHIOPRINE. [Suspect]
     Active Substance: AZATHIOPRINE
     Indication: ASTHMA
     Dosage: 100 MG, QD
     Route: 048
     Dates: start: 2000, end: 2003
  2. LISINOPRIL. [Concomitant]
     Active Substance: LISINOPRIL
     Indication: PRODUCT USED FOR UNKNOWN INDICATION
     Dosage: UNK
  3. IMURAN [Suspect]
     Active Substance: AZATHIOPRINE
     Dosage: 100 MG, QD
     Route: 048
     Dates: start: 20131013
  4. IMURAN [Suspect]
     Active Substance: AZATHIOPRINE
     Indication: PRODUCT USED FOR UNKNOWN INDICATION
     Dosage: 100 MG, QD
     Route: 048
     Dates: start: 2000, end: 2003
  5. AZATHIOPRINE. [Suspect]
     Active Substance: AZATHIOPRINE
     Dosage: 100 MG, QD
     Route: 048
     Dates: start: 20131013
  6. ATENOLOL. [Concomitant]
     Active Substance: ATENOLOL
     Indication: PRODUCT USED FOR UNKNOWN INDICATION
     Dosage: 50 MG, BID
     Dates: start: 1990
  7. PREDNISONE TABLETS USP [Suspect]
     Active Substance: PREDNISONE
     Indication: PRODUCT USED FOR UNKNOWN INDICATION
     Dosage: UNK

REACTIONS (13)
  - Unresponsive to stimuli [Unknown]
  - Atrial fibrillation [Unknown]
  - Dehydration [Unknown]
  - Deafness [Unknown]
  - Accident [Unknown]
  - Aphonia [Unknown]
  - Loss of consciousness [Unknown]
  - Cardiac disorder [Unknown]
  - Angiopathy [Unknown]
  - Diarrhoea [Unknown]
  - Asthenia [Unknown]
  - Nodule [Unknown]
  - Dyspnoea [Unknown]
